FAERS Safety Report 7089416-5 (Version None)
Quarter: 2010Q4

REPORT INFORMATION
  Report Type: 
  Country: None (occurrence: None)
  Receive Date: 20101108
  Receipt Date: 20101028
  Transmission Date: 20110411
  Serious: Yes (Other)
  Sender: FDA-Public Use
  Company Number: GXKR2010US12208

PATIENT
  Age: 46 Year
  Sex: Female

DRUGS (7)
  1. MONTELUKAST SODIUM [Suspect]
     Indication: ASTHMA
     Route: 065
  2. PREDNISONE [Suspect]
     Indication: ASTHMA
     Route: 065
  3. PREDNISONE [Suspect]
     Dosage: 8 MG/DAY
     Route: 065
  4. TORSEMIDE [Concomitant]
  5. DIGOXIN [Concomitant]
  6. SPIRONOLACTONE [Concomitant]
  7. FLUTICASONE W/SALMETEROL [Concomitant]

REACTIONS (4)
  - EOSINOPHILIC MYOCARDITIS [None]
  - HAEMOLYTIC ANAEMIA [None]
  - SINUS TACHYCARDIA [None]
  - WITHDRAWAL SYNDROME [None]
